FAERS Safety Report 7425521-9 (Version None)
Quarter: 2011Q2

REPORT INFORMATION
  Report Type: 
  Country: None (occurrence: None)
  Receive Date: 20110412
  Receipt Date: 20110329
  Transmission Date: 20111010
  Serious: Yes (Hospitalization)
  Sender: FDA-Public Use
  Company Number: 030210

PATIENT
  Age: 33 Year
  Sex: Male
  Weight: 27 kg

DRUGS (2)
  1. KEPPRA [Suspect]
     Dosage: (ORAL)
     Route: 048
  2. ANTIEPILEPTICS [Concomitant]

REACTIONS (1)
  - INTESTINAL OBSTRUCTION [None]
